FAERS Safety Report 22086600 (Version 3)
Quarter: 2023Q1

REPORT INFORMATION
  Report Type: Report from Study
  Country: US (occurrence: US)
  Receive Date: 20230312
  Receipt Date: 20230322
  Transmission Date: 20230418
  Serious: No
  Sender: FDA-Public Use
  Company Number: US-002147023-NVSC2023US056131

PATIENT
  Sex: Female
  Weight: 83.46 kg

DRUGS (1)
  1. CLOBETASOL [Suspect]
     Active Substance: CLOBETASOL
     Indication: Psoriasis
     Dosage: 0.05 %
     Route: 065

REACTIONS (4)
  - Macule [Unknown]
  - Papule [Unknown]
  - Psoriasis [Unknown]
  - Drug ineffective [Unknown]
